FAERS Safety Report 6673779-6 (Version None)
Quarter: 2010Q2

REPORT INFORMATION
  Report Type: 
  Country: None (occurrence: None)
  Receive Date: 20100407
  Receipt Date: 20100329
  Transmission Date: 20101027
  Serious: Yes (Other)
  Sender: FDA-Public Use
  Company Number: 2010SP019042

PATIENT
  Age: 25 Year
  Sex: Male
  Weight: 73 kg

DRUGS (5)
  1. REMERON [Suspect]
     Indication: MENTAL DISORDER
     Dosage: HS; PO
     Route: 048
     Dates: start: 20100224
  2. CLOXAZOLAM [Concomitant]
  3. MELLARIL [Concomitant]
  4. ENOXAPARIN SODIUM [Concomitant]
  5. MAREVAN [Concomitant]

REACTIONS (6)
  - BACK PAIN [None]
  - EPISTAXIS [None]
  - INFARCTION [None]
  - PULMONARY EMBOLISM [None]
  - VEIN PAIN [None]
  - WEIGHT DECREASED [None]
